FAERS Safety Report 4711173-5 (Version None)
Quarter: 2005Q3

REPORT INFORMATION
  Report Type: 
  Country: None (occurrence: None)
  Receive Date: 20050708
  Receipt Date: 20050629
  Transmission Date: 20060218
  Serious: Yes (Hospitalization)
  Sender: FDA-Public Use
  Company Number: 2005-06-2152

PATIENT
  Sex: Female

DRUGS (1)
  1. CLARINEX [Suspect]
     Indication: SEASONAL ALLERGY
     Dates: start: 20050301

REACTIONS (1)
  - ANGIONEUROTIC OEDEMA [None]
